FAERS Safety Report 7877734-X (Version None)
Quarter: 2011Q4

REPORT INFORMATION
  Report Type: 
  Country: None (occurrence: None)
  Receive Date: 20111031
  Receipt Date: 20111031
  Transmission Date: 20120403
  Serious: No
  Sender: FDA-Public Use
  Company Number: None

PATIENT
  Age: 68 Year
  Sex: Female
  Weight: 62.595 kg

DRUGS (1)
  1. DOC-Q-LAX [Suspect]
     Indication: CONSTIPATION
     Dosage: 2 TABLETS
     Route: 048
     Dates: start: 20111126, end: 20111126

REACTIONS (7)
  - MUSCULAR WEAKNESS [None]
  - NAUSEA [None]
  - VOMITING [None]
  - DISCOMFORT [None]
  - EATING DISORDER [None]
  - DIZZINESS [None]
  - MALAISE [None]
